FAERS Safety Report 10795358 (Version 1)
Quarter: 2015Q1

REPORT INFORMATION
  Report Type: Spontaneous
  Country: US (occurrence: US)
  Receive Date: 20150214
  Receipt Date: 20150214
  Transmission Date: 20150721
  Serious: No
  Sender: FDA-Public Use
  Company Number: US-GLAXOSMITHKLINE-A1072394A

PATIENT

DRUGS (2)
  1. NICOTINE LOZENGE [Suspect]
     Active Substance: NICOTINE
     Route: 002
  2. NICORETTE [Suspect]
     Active Substance: NICOTINE
     Indication: EX-TOBACCO USER

REACTIONS (3)
  - Nicotine dependence [Not Recovered/Not Resolved]
  - Malaise [Unknown]
  - Product quality issue [Unknown]
